FAERS Safety Report 4744697-5 (Version None)
Quarter: 2005Q3

REPORT INFORMATION
  Report Type: 
  Country: None (occurrence: None)
  Receive Date: 20050812
  Receipt Date: 20050812
  Transmission Date: 20060218
  Serious: Yes (Death, Hospitalization)
  Sender: FDA-Public Use
  Company Number: None

PATIENT
  Sex: Female
  Weight: 61.8 kg

DRUGS (2)
  1. CYTARABINE [Suspect]
     Indication: ACUTE MYELOID LEUKAEMIA
     Dosage: SEE IMAGE
     Route: 042
     Dates: start: 20050625, end: 20050629
  2. DAUNORUBICIN HCL [Suspect]
     Dosage: SEE IMAGE
     Route: 042
     Dates: start: 20050625, end: 20050626

REACTIONS (12)
  - BLOOD CULTURE POSITIVE [None]
  - CANDIDIASIS [None]
  - DYSPNOEA [None]
  - FALL [None]
  - HIP FRACTURE [None]
  - LOBAR PNEUMONIA [None]
  - MENTAL IMPAIRMENT [None]
  - PARAINFLUENZAE VIRUS INFECTION [None]
  - PLATELET COUNT DECREASED [None]
  - PYREXIA [None]
  - STAPHYLOCOCCAL INFECTION [None]
  - STENOTROPHOMONAS INFECTION [None]
